FAERS Safety Report 14825807 (Version 4)
Quarter: 2018Q4

REPORT INFORMATION
  Report Type: Spontaneous
  Country: US (occurrence: US)
  Receive Date: 20180430
  Receipt Date: 20181019
  Transmission Date: 20190204
  Serious: Yes (Hospitalization)
  Sender: FDA-Public Use
  Company Number: US-PFIZER INC-2018064258

PATIENT
  Age: 63 Year
  Sex: Female

DRUGS (5)
  1. LYRICA [Suspect]
     Active Substance: PREGABALIN
     Indication: NEUROPATHY PERIPHERAL
     Dosage: 100 MG, 4X/DAY
     Route: 048
     Dates: start: 200701
  2. LYRICA [Suspect]
     Active Substance: PREGABALIN
     Indication: NEURALGIA
  3. LYRICA [Suspect]
     Active Substance: PREGABALIN
     Indication: NERVE INJURY
     Dosage: 20 MG, 4X/DAY
     Dates: start: 2005
  4. CORTIZONE 10 [Suspect]
     Active Substance: HYDROCORTISONE
     Dosage: UNK
     Dates: start: 201801, end: 201801
  5. HYDROCODONE [Concomitant]
     Active Substance: HYDROCODONE
     Dosage: UNK (7.5 MG/325 )

REACTIONS (3)
  - Pain [Unknown]
  - Product use issue [Unknown]
  - Tremor [Unknown]

NARRATIVE: CASE EVENT DATE: 2005
